FAERS Safety Report 17450315 (Version 1)
Quarter: 2020Q1

REPORT INFORMATION
  Report Type: Spontaneous
  Country: GB (occurrence: GB)
  Receive Date: 20200224
  Receipt Date: 20200224
  Transmission Date: 20200409
  Serious: Yes (Other)
  Sender: FDA-Public Use
  Company Number: GB-TEVA-2020-GB-1190865

PATIENT
  Sex: Male

DRUGS (2)
  1. ADOPORT [Concomitant]
     Active Substance: TACROLIMUS
  2. MYFENAX [Suspect]
     Active Substance: MYCOPHENOLATE MOFETIL
     Route: 065

REACTIONS (1)
  - Neoplasm malignant [Unknown]
